FAERS Safety Report 20870632 (Version 2)
Quarter: 2022Q2

REPORT INFORMATION
  Report Type: Report from Study
  Country: US (occurrence: US)
  Receive Date: 20220525
  Receipt Date: 20220623
  Transmission Date: 20220721
  Serious: No
  Sender: FDA-Public Use
  Company Number: US-BRISTOL-MYERS SQUIBB COMPANY-2022-028838

PATIENT
  Sex: Male
  Weight: 79.3 kg

DRUGS (1)
  1. ELIQUIS [Suspect]
     Active Substance: APIXABAN
     Indication: Cerebrovascular accident prophylaxis
     Route: 048
     Dates: start: 2021

REACTIONS (8)
  - Skin discolouration [Unknown]
  - Burning sensation [Unknown]
  - Wrong technique in product usage process [Unknown]
  - Fatigue [Unknown]
  - Varicose vein [Unknown]
  - Dry skin [Unknown]
  - Burning sensation [Unknown]
  - Rash [Unknown]
